FAERS Safety Report 5989910-1 (Version None)
Quarter: 2008Q4

REPORT INFORMATION
  Report Type: 
  Country: None (occurrence: None)
  Receive Date: 20081210
  Receipt Date: 20081203
  Transmission Date: 20090506
  Serious: Yes (Death)
  Sender: FDA-Public Use
  Company Number: 2008SP024615

PATIENT
  Age: 57 Year
  Sex: Male
  Weight: 57 kg

DRUGS (2)
  1. TEMODAL [Suspect]
     Indication: BRAIN NEOPLASM
     Dosage: 340 MG;QD;PO
     Route: 048
     Dates: start: 20081028, end: 20081101
  2. INTERFERON BETA (INTERFERON BETA) [Suspect]
     Indication: BRAIN NEOPLASM
     Dosage: 3 MIU; INDRP
     Dates: start: 20081028, end: 20081101

REACTIONS (1)
  - BONE MARROW FAILURE [None]
